FAERS Safety Report 5674122-1 (Version None)
Quarter: 2008Q1

REPORT INFORMATION
  Report Type: 
  Country: None (occurrence: None)
  Receive Date: 20080320
  Receipt Date: 20080313
  Transmission Date: 20080703
  Serious: Yes (Hospitalization)
  Sender: FDA-Public Use
  Company Number: JP-NOVOPROD-273270

PATIENT
  Weight: 1.934 kg

DRUGS (2)
  1. NOVOLIN R [Suspect]
     Indication: GESTATIONAL DIABETES
     Route: 064
  2. NOVOLIN N [Suspect]
     Indication: GESTATIONAL DIABETES
     Route: 064

REACTIONS (1)
  - ASPHYXIA [None]
